FAERS Safety Report 18676255 (Version 1)
Quarter: 2020Q4

REPORT INFORMATION
  Report Type: Spontaneous
  Country: US (occurrence: US)
  Receive Date: 20201228
  Receipt Date: 20201228
  Transmission Date: 20210114
  Serious: No
  Sender: FDA-Public Use
  Company Number: None

PATIENT
  Age: 27 Year
  Sex: Female

DRUGS (1)
  1. TYSABRI [Suspect]
     Active Substance: NATALIZUMAB
     Indication: MULTIPLE SCLEROSIS
     Dosage: ?          OTHER FREQUENCY:EVERY28DAYS ;?
     Route: 042
     Dates: start: 20201211

REACTIONS (6)
  - Skin disorder [None]
  - Nausea [None]
  - Pruritus [None]
  - Skin swelling [None]
  - Erythema [None]
  - Heart rate increased [None]

NARRATIVE: CASE EVENT DATE: 20201215
